FAERS Safety Report 8169469-3 (Version None)
Quarter: 2012Q1

REPORT INFORMATION
  Report Type: 
  Country: None (occurrence: None)
  Receive Date: 20120104
  Receipt Date: 20110928
  Transmission Date: 20120608
  Serious: Yes (Hospitalization)
  Sender: FDA-Public Use
  Company Number: 2011HGS-002594

PATIENT
  Age: 63 Year
  Sex: Male
  Weight: 96.6162 kg

DRUGS (12)
  1. OPANA (OXYMORPHONE) (OXYMORPONE) [Concomitant]
  2. CATAPRES (CLONIDINE) (CLONIDINE) [Concomitant]
  3. REVATIO (SILDENAFIL) (SILDENAFIL) [Concomitant]
  4. PREDNISONE [Concomitant]
  5. BURINEX (BUMETANIDE) (BUMETANIDE) [Concomitant]
  6. BENLYSTA [Suspect]
     Indication: SYSTEMIC LUPUS ERYTHEMATOSUS
     Dosage: 10 MG/KG, 1 IN 4 WK, INTRAVENOUS DRIP
     Route: 041
     Dates: start: 20110425, end: 20110819
  7. PLAQUENIL (HYDROXYCHLOROQUINE SULFATE) (HYDROXYCHLOROQUINE SULFATE) [Concomitant]
  8. METHOTREXATE [Concomitant]
  9. ACTIQ (FENTANYL CITRATE) (FENTANYL CITRATE) [Concomitant]
  10. NEURONTIN [Concomitant]
  11. CELEBREX [Concomitant]
  12. LISINOPRIL [Concomitant]

REACTIONS (10)
  - PARAESTHESIA ORAL [None]
  - HYPOAESTHESIA ORAL [None]
  - FATIGUE [None]
  - SYSTEMIC LUPUS ERYTHEMATOSUS [None]
  - PNEUMONIA [None]
  - JOINT SWELLING [None]
  - ALOPECIA [None]
  - HAEMOPTYSIS [None]
  - BRONCHITIS [None]
  - CONDITION AGGRAVATED [None]
